FAERS Safety Report 7167282-7 (Version None)
Quarter: 2010Q4

REPORT INFORMATION
  Report Type: 
  Country: None (occurrence: None)
  Receive Date: 20101216
  Receipt Date: 20101213
  Transmission Date: 20110411
  Serious: Yes (Hospitalization, Disabling)
  Sender: FDA-Public Use
  Company Number: GB-MERCK-1012GBR00056

PATIENT
  Age: 66 Year
  Sex: Female
  Weight: 100 kg

DRUGS (9)
  1. FOSAMAX [Suspect]
     Route: 048
     Dates: start: 20090101, end: 20100101
  2. ATORVASTATIN [Concomitant]
     Route: 048
  3. AZATHIOPRINE [Concomitant]
     Indication: ANTINEUTROPHIL CYTOPLASMIC ANTIBODY POSITIVE
     Route: 048
  4. FUROSEMIDE [Concomitant]
     Route: 048
  5. GABAPENTIN [Concomitant]
     Route: 065
  6. PREDNISOLONE [Concomitant]
     Indication: ANTINEUTROPHIL CYTOPLASMIC ANTIBODY POSITIVE
     Route: 048
  7. QUININE [Concomitant]
     Route: 048
  8. RAMIPRIL [Concomitant]
     Route: 048
  9. LEVOTHYROXINE SODIUM [Concomitant]
     Route: 048

REACTIONS (1)
  - FEMUR FRACTURE [None]
